FAERS Safety Report 9321722 (Version 2)
Quarter: 2013Q4

REPORT INFORMATION
  Report Type: Spontaneous
  Country: CN (occurrence: CN)
  Receive Date: 20130531
  Receipt Date: 20131230
  Transmission Date: 20140711
  Serious: Yes (Other)
  Sender: FDA-Public Use
  Company Number: CN-JNJFOC-20130516014

PATIENT
  Age: 40 Year
  Sex: Female

DRUGS (2)
  1. SPORANOX [Suspect]
     Indication: TINEA PEDIS
     Route: 048
     Dates: start: 20130518
  2. GOLD DAKTARIN [Concomitant]
     Route: 065

REACTIONS (3)
  - VIIth nerve paralysis [Not Recovered/Not Resolved]
  - Vision blurred [Not Recovered/Not Resolved]
  - Drug ineffective [Unknown]
